FAERS Safety Report 8517738-7 (Version None)
Quarter: 2012Q3

REPORT INFORMATION
  Report Type: 
  Country: None (occurrence: None)
  Receive Date: 20120712
  Receipt Date: 20120712
  Transmission Date: 20120928
  Serious: Yes (Life-Threatening)
  Sender: FDA-Public Use
  Company Number: None

PATIENT
  Age: 55 Year
  Sex: Male

DRUGS (2)
  1. DIDANOSINE [Suspect]
     Indication: HIV INFECTION
     Dosage: 250 MG DAILY PO
     Route: 048
     Dates: start: 20040301, end: 20071001
  2. ETANERCEPT V [Suspect]
     Indication: PSORIASIS
     Dosage: 50 MG SC QWK
     Route: 058
     Dates: start: 20090501, end: 20120701

REACTIONS (3)
  - ASCITES [None]
  - ABDOMINAL PAIN [None]
  - HEPATIC CIRRHOSIS [None]
